FAERS Safety Report 5083700-2 (Version None)
Quarter: 2006Q3

REPORT INFORMATION
  Report Type: 
  Country: None (occurrence: None)
  Receive Date: 20060818
  Receipt Date: 20060807
  Transmission Date: 20061208
  Serious: Yes (Hospitalization)
  Sender: FDA-Public Use
  Company Number: 2006GB01381

PATIENT
  Age: 66 Year
  Sex: Female
  Weight: 80 kg

DRUGS (7)
  1. ROSUVASTATIN [Suspect]
     Indication: BLOOD CHOLESTEROL INCREASED
     Route: 048
     Dates: end: 20060518
  2. EZETIMIBE [Suspect]
     Indication: BLOOD CHOLESTEROL INCREASED
     Route: 048
     Dates: end: 20060518
  3. ADIZEM [Concomitant]
     Indication: ANGINA PECTORIS
     Route: 048
  4. CETIRIZINE [Concomitant]
     Indication: SEASONAL ALLERGY
     Route: 048
  5. ESTRADERM [Concomitant]
     Indication: HORMONE REPLACEMENT THERAPY
     Route: 061
  6. ISMN [Concomitant]
     Indication: ANGINA PECTORIS
     Route: 048
  7. NICORANDIL [Concomitant]
     Indication: ANGINA PECTORIS
     Route: 048

REACTIONS (2)
  - BLOOD CREATININE INCREASED [None]
  - BLOOD UREA INCREASED [None]
